FAERS Safety Report 9121965 (Version 9)
Quarter: 2016Q2

REPORT INFORMATION
  Report Type: Spontaneous
  Country: US (occurrence: US)
  Receive Date: 20130114
  Receipt Date: 20160412
  Transmission Date: 20160815
  Serious: Yes (Disabling, Other)
  Sender: FDA-Public Use
  Company Number: US-009507513-1301USA004592

PATIENT
  Sex: Male
  Weight: 84.35 kg

DRUGS (3)
  1. FINASTERIDE. [Suspect]
     Active Substance: FINASTERIDE
     Indication: ANDROGENETIC ALOPECIA
     Dosage: 1/4 OF 5MG TABLET DAILY
     Route: 048
     Dates: start: 201107, end: 201110
  2. PROPECIA [Suspect]
     Active Substance: FINASTERIDE
     Indication: ANDROGENETIC ALOPECIA
     Dosage: 1 MG, QD
     Route: 048
     Dates: start: 200909, end: 201107
  3. PROSCAR [Suspect]
     Active Substance: FINASTERIDE
     Indication: ANDROGENETIC ALOPECIA
     Dosage: 1/4 OF 5 MG, DAILY
     Route: 048
     Dates: start: 201107, end: 201110

REACTIONS (17)
  - Anxiety [Not Recovered/Not Resolved]
  - Drug administration error [Unknown]
  - Erectile dysfunction [Not Recovered/Not Resolved]
  - Wrong technique in product usage process [Unknown]
  - Muscle spasms [Unknown]
  - Cognitive disorder [Not Recovered/Not Resolved]
  - Semen volume decreased [Unknown]
  - Suicidal ideation [Unknown]
  - Sexual dysfunction [Not Recovered/Not Resolved]
  - Fatigue [Not Recovered/Not Resolved]
  - Amnesia [Not Recovered/Not Resolved]
  - Libido decreased [Not Recovered/Not Resolved]
  - Limb injury [Unknown]
  - Back pain [Unknown]
  - Ejaculation disorder [Unknown]
  - Depression [Not Recovered/Not Resolved]
  - Insomnia [Unknown]

NARRATIVE: CASE EVENT DATE: 201002
